FAERS Safety Report 7553868-4 (Version None)
Quarter: 2011Q2

REPORT INFORMATION
  Report Type: 
  Country: None (occurrence: None)
  Receive Date: 20110617
  Receipt Date: 20110608
  Transmission Date: 20111010
  Serious: Yes (Hospitalization)
  Sender: FDA-Public Use
  Company Number: CH-PFIZER INC-2011131275

PATIENT
  Age: 80 Year
  Sex: Male

DRUGS (6)
  1. MORPHINE SULFATE [Suspect]
     Dosage: 20 MG, 3X/DAY
     Route: 048
     Dates: start: 20110521, end: 20110523
  2. ACETYLSALICYLIC ACID [Concomitant]
  3. ACETAMINOPHEN [Concomitant]
  4. NORADRENALIN ^LECIVA^ [Concomitant]
  5. MORPHINE SULFATE [Suspect]
     Dosage: 20 MG, 2X/DAY
     Route: 048
     Dates: start: 20110520, end: 20110521
  6. SIMVASTATIN [Concomitant]

REACTIONS (1)
  - ALTERED STATE OF CONSCIOUSNESS [None]
